FAERS Safety Report 20742228 (Version 1)
Quarter: 2022Q2

REPORT INFORMATION
  Report Type: Spontaneous
  Country: LA (occurrence: None)
  Receive Date: 20220423
  Receipt Date: 20220423
  Transmission Date: 20220721
  Serious: Yes (Other)
  Sender: FDA-Public Use
  Company Number: TH-ROCHE-3001881

PATIENT

DRUGS (1)
  1. XELODA [Suspect]
     Active Substance: CAPECITABINE
     Indication: Adenocarcinoma
     Route: 048

REACTIONS (3)
  - Adenocarcinoma [Unknown]
  - Pain [Unknown]
  - Arthralgia [Unknown]
